FAERS Safety Report 8410643-6 (Version None)
Quarter: 2012Q2

REPORT INFORMATION
  Report Type: 
  Country: None (occurrence: None)
  Receive Date: 20120605
  Receipt Date: 20120522
  Transmission Date: 20120825
  Serious: Yes (Other)
  Sender: FDA-Public Use
  Company Number: IE-COVIDIEN/TYCO HEALTHCARE/MALLINCKRODT-T201202145

PATIENT
  Age: 26 Year
  Sex: Female

DRUGS (1)
  1. METHADOSE [Suspect]
     Indication: DRUG WITHDRAWAL MAINTENANCE THERAPY
     Dosage: UNK

REACTIONS (2)
  - MATERNAL EXPOSURE DURING PREGNANCY [None]
  - PREMATURE DELIVERY [None]
